FAERS Safety Report 4301361-4 (Version None)
Quarter: 2004Q1

REPORT INFORMATION
  Report Type: 
  Country: None (occurrence: None)
  Receive Date: 20040219
  Receipt Date: 20040128
  Transmission Date: 20041129
  Serious: Yes (Hospitalization, Other)
  Sender: FDA-Public Use
  Company Number: 2004IM000153

PATIENT
  Age: 65 Year
  Sex: Male

DRUGS (4)
  1. ADVAFERON (A1643_INTERFERON ALFACON-1) [Suspect]
     Indication: HEPATITIS C
     Dosage: 12 MU;QD;SUBCUTANEOUS
     Route: 058
     Dates: start: 20020125, end: 20020126
  2. URSODEOXYCHOLIC ACID [Concomitant]
  3. VITAMIN B COMPLEX CAP [Concomitant]
  4. LACTOMIN [Concomitant]

REACTIONS (3)
  - ALANINE AMINOTRANSFERASE INCREASED [None]
  - ASPARTATE AMINOTRANSFERASE INCREASED [None]
  - ERYTHEMA [None]
